FAERS Safety Report 10335793 (Version 1)
Quarter: 2014Q3

REPORT INFORMATION
  Report Type: Spontaneous
  Country: US (occurrence: US)
  Receive Date: 20140723
  Receipt Date: 20140723
  Transmission Date: 20150326
  Serious: No
  Sender: FDA-Public Use
  Company Number: US-BAYER-2014-107252

PATIENT
  Age: 35 Year
  Sex: Male

DRUGS (1)
  1. BETASERON [Suspect]
     Active Substance: INTERFERON BETA-1B
     Indication: MULTIPLE SCLEROSIS
     Dosage: BETWEEN 0.1875 AND 0.25MG, QOD
     Route: 058
     Dates: start: 201312

REACTIONS (3)
  - Muscular weakness [None]
  - Speech disorder [None]
  - Hypoaesthesia [None]

NARRATIVE: CASE EVENT DATE: 201312
